FAERS Safety Report 9879521 (Version 1)
Quarter: 2014Q1

REPORT INFORMATION
  Report Type: Spontaneous
  Country: US (occurrence: US)
  Receive Date: 20140206
  Receipt Date: 20140206
  Transmission Date: 20141002
  Serious: No
  Sender: FDA-Public Use
  Company Number: US-009507513-1401USA012800

PATIENT
  Sex: Female

DRUGS (8)
  1. PEGINTRON [Suspect]
     Indication: HEPATITIS C
     Dosage: 0.5 UNK, Q7DAYS
     Route: 058
     Dates: start: 20131102
  2. REBETOL [Suspect]
     Dosage: 600 MG, QAM
     Route: 048
     Dates: start: 20131102
  3. REBETOL [Suspect]
     Dosage: 400 MG, QPM
     Route: 048
     Dates: start: 20131102
  4. LISINOPRIL [Concomitant]
     Dosage: 20MG/25MG
  5. METFORMIN [Concomitant]
     Dosage: 200 MG, UNK
  6. GLIMEPIRIDE [Concomitant]
     Dosage: 4 MG, UNK
  7. ZOFRAN [Concomitant]
     Dosage: 4 MG, UNK
  8. ZOLPIDEM TARTRATE [Concomitant]
     Dosage: 10 MG, UNK

REACTIONS (24)
  - Musculoskeletal disorder [Unknown]
  - Blood disorder [Unknown]
  - Hypoaesthesia [Unknown]
  - Memory impairment [Unknown]
  - Back pain [Unknown]
  - Influenza like illness [Unknown]
  - Rash [Unknown]
  - Headache [Unknown]
  - Nausea [Unknown]
  - Vomiting [Unknown]
  - Alopecia [Unknown]
  - Diarrhoea [Unknown]
  - Myalgia [Unknown]
  - Malaise [Unknown]
  - Anxiety [Unknown]
  - Fatigue [Unknown]
  - Insomnia [Unknown]
  - Dyspnoea [Unknown]
  - Anaemia [Unknown]
  - Leukopenia [Unknown]
  - Pain [Unknown]
  - Asthenia [Unknown]
  - Red blood cell count decreased [Unknown]
  - White blood cell count decreased [Unknown]
